FAERS Safety Report 18039326 (Version 1)
Quarter: 2020Q3

REPORT INFORMATION
  Report Type: Spontaneous
  Country: US (occurrence: US)
  Receive Date: 20200717
  Receipt Date: 20200717
  Transmission Date: 20201103
  Serious: Yes (Other)
  Sender: FDA-Public Use
  Company Number: US-B.I. PHARMACEUTICALS,INC./RIDGEFIELD-2020-BI-035224

PATIENT
  Sex: Male

DRUGS (2)
  1. GILOTRIF [Suspect]
     Active Substance: AFATINIB
     Indication: LUNG NEOPLASM MALIGNANT
     Dosage: 40MG ONE TABLE DAILY
     Route: 065
     Dates: start: 2018
  2. GILOTRIF [Suspect]
     Active Substance: AFATINIB
     Dosage: 20MG ONE TABLET DAILY
     Route: 065

REACTIONS (2)
  - Malignant neoplasm progression [Recovering/Resolving]
  - Fatigue [Recovered/Resolved]

NARRATIVE: CASE EVENT DATE: 2019
